FAERS Safety Report 7889765-4 (Version None)
Quarter: 2011Q4

REPORT INFORMATION
  Report Type: 
  Country: None (occurrence: None)
  Receive Date: 20111103
  Receipt Date: 20110106
  Transmission Date: 20120403
  Serious: Yes (Death)
  Sender: FDA-Public Use
  Company Number: US-B.I. PHARMACEUTICALS,INC./RIDGEFIELD-2011-DE-00462GD

PATIENT
  Age: 65 Year
  Sex: Male

DRUGS (6)
  1. TRAZODONE HYDROCHLORIDE [Suspect]
     Route: 048
  2. SIMVASTATIN [Suspect]
  3. OLMESARTAN MEDOXOMIL AND HYDROCHLOROTHIZIDE [Suspect]
     Route: 048
  4. RANITIDINE [Suspect]
     Route: 048
  5. LEVOTHYROXINE SODIUM [Suspect]
     Route: 048
  6. LORAZEPAM [Suspect]
     Route: 048

REACTIONS (1)
  - COMPLETED SUICIDE [None]
